FAERS Safety Report 6094290-X (Version None)
Quarter: 2009Q1

REPORT INFORMATION
  Report Type: 
  Country: None (occurrence: None)
  Receive Date: 20090226
  Receipt Date: 20081006
  Transmission Date: 20090719
  Serious: No
  Sender: FDA-Public Use
  Company Number: US-TYCO HEALTHCARE/MALLINCKRODT-T200801626

PATIENT

DRUGS (3)
  1. TECHNESCAN [Suspect]
     Indication: BONE SCAN
     Dosage: UNK
     Route: 042
     Dates: start: 20080903, end: 20080903
  2. ULTRA-TECHNEKOW [Suspect]
     Indication: BONE SCAN
     Dosage: 26.8 MCI, SINGLE
     Route: 042
     Dates: start: 20080903, end: 20080903
  3. ALLEGRA [Concomitant]
     Dosage: 180 MG, QD
     Route: 048

REACTIONS (1)
  - JOINT SWELLING [None]
